FAERS Safety Report 5805508-X (Version None)
Quarter: 2008Q3

REPORT INFORMATION
  Report Type: 
  Country: None (occurrence: None)
  Receive Date: 20080710
  Receipt Date: 20080702
  Transmission Date: 20090109
  Serious: Yes (Life-Threatening, Other)
  Sender: FDA-Public Use
  Company Number: GB-AMGEN-US289060

PATIENT
  Sex: Female

DRUGS (2)
  1. ENBREL [Suspect]
     Indication: RHEUMATOID ARTHRITIS
     Dosage: 25 MG FREQUENCY UNKNOWN
     Route: 058
     Dates: start: 20030120, end: 20080306
  2. ACETAMINOPHEN [Concomitant]
     Dosage: AS REQUIRED
     Route: 048

REACTIONS (1)
  - HEPATIC FAILURE [None]
